FAERS Safety Report 7138171-9 (Version None)
Quarter: 2010Q4

REPORT INFORMATION
  Report Type: 
  Country: None (occurrence: None)
  Receive Date: 20101201
  Receipt Date: 20101201
  Transmission Date: 20110411
  Serious: Yes (Hospitalization)
  Sender: FDA-Public Use
  Company Number: None

PATIENT
  Sex: Male
  Weight: 75.6 kg

DRUGS (2)
  1. BEVACIZUMAB 1134MG [Suspect]
     Indication: PROSTATE CANCER
     Dosage: 15MG/KG Q 21 DAYS IV
     Route: 042
     Dates: start: 20101006, end: 20101117
  2. DOCETAXEL [Suspect]
     Indication: PROSTATE CANCER
     Dates: start: 20101006, end: 20101117

REACTIONS (4)
  - BRADYCARDIA [None]
  - CHEST PAIN [None]
  - ELECTROCARDIOGRAM CHANGE [None]
  - FEBRILE NEUTROPENIA [None]
